FAERS Safety Report 5896929-8 (Version None)
Quarter: 2008Q3

REPORT INFORMATION
  Report Type: 
  Country: None (occurrence: None)
  Receive Date: 20080924
  Receipt Date: 20080424
  Transmission Date: 20090109
  Serious: Yes (Other)
  Sender: FDA-Public Use
  Company Number: US-ASTRAZENECA-2008UW04121

PATIENT
  Age: 61 Year
  Sex: Male
  Weight: 68 kg

DRUGS (1)
  1. SEROQUEL [Suspect]
     Route: 048
     Dates: start: 20071101

REACTIONS (4)
  - BODY TEMPERATURE INCREASED [None]
  - CONFUSIONAL STATE [None]
  - GAIT DISTURBANCE [None]
  - NEUROLEPTIC MALIGNANT SYNDROME [None]
